FAERS Safety Report 5026733-4 (Version None)
Quarter: 2006Q2

REPORT INFORMATION
  Report Type: 
  Country: None (occurrence: None)
  Receive Date: 20060608
  Receipt Date: 20060517
  Transmission Date: 20061013
  Serious: Yes (Life-Threatening, Hospitalization)
  Sender: FDA-Public Use
  Company Number: JPKYO-S-20060019

PATIENT
  Age: 75 Year
  Sex: Female

DRUGS (7)
  1. NAVELBINE [Suspect]
     Indication: LUNG ADENOCARCINOMA
     Dates: start: 20050912, end: 20051207
  2. PYDOXAL [Concomitant]
  3. TENORMIN [Concomitant]
  4. NORVASC [Concomitant]
  5. MECOBALAMIN [Concomitant]
  6. CODEINE PHOSPHATE [Concomitant]
  7. ZANTAC [Concomitant]

REACTIONS (5)
  - ACTIVITIES OF DAILY LIVING IMPAIRED [None]
  - INTRACARDIAC THROMBUS [None]
  - NEUROPATHY PERIPHERAL [None]
  - PULMONARY EMBOLISM [None]
  - RESPIRATORY FAILURE [None]
